FAERS Safety Report 24175421 (Version 1)
Quarter: 2024Q3

REPORT INFORMATION
  Report Type: Spontaneous
  Country: US (occurrence: US)
  Receive Date: 20240805
  Receipt Date: 20240805
  Transmission Date: 20241016
  Serious: No
  Sender: NOVARTIS
  Company Number: US-002147023-NVSC2024US157139

PATIENT
  Sex: Female

DRUGS (2)
  1. SCEMBLIX [Suspect]
     Active Substance: ASCIMINIB HYDROCHLORIDE
     Indication: Cerebral palsy
     Dosage: 80 MG, BID
     Route: 048
  2. SCEMBLIX [Suspect]
     Active Substance: ASCIMINIB HYDROCHLORIDE
     Indication: Chronic myeloid leukaemia

REACTIONS (2)
  - Chest discomfort [Unknown]
  - Palpitations [Unknown]
